FAERS Safety Report 7177971-6 (Version None)
Quarter: 2010Q4

REPORT INFORMATION
  Report Type: 
  Country: None (occurrence: None)
  Receive Date: 20101220
  Receipt Date: 20101209
  Transmission Date: 20110411
  Serious: Yes (Other)
  Sender: FDA-Public Use
  Company Number: US-ACTELION-A-US2010-40830

PATIENT

DRUGS (1)
  1. BOSENTAN TABLET UNKNOWN US MG [Suspect]
     Indication: RAYNAUD'S PHENOMENON
     Dosage: UNK
     Route: 048
     Dates: start: 20100225

REACTIONS (1)
  - SKIN ULCER [None]
